FAERS Safety Report 7789641-1 (Version None)
Quarter: 2011Q3

REPORT INFORMATION
  Report Type: 
  Country: None (occurrence: None)
  Receive Date: 20110930
  Receipt Date: 20110928
  Transmission Date: 20111222
  Serious: Yes (Hospitalization, Other)
  Sender: FDA-Public Use
  Company Number: US-MERCK-1007USA00216

PATIENT
  Age: 48 Year
  Sex: Female
  Weight: 76 kg

DRUGS (5)
  1. FOSAMAX [Suspect]
     Indication: OSTEOPENIA
     Route: 048
     Dates: start: 19980131
  2. FOSAMAX [Suspect]
     Route: 048
     Dates: end: 20080901
  3. CALCIUM (UNSPECIFIED) [Concomitant]
     Indication: OSTEOPOROSIS
     Route: 065
     Dates: start: 19980101
  4. FOSAMAX [Suspect]
     Route: 048
     Dates: end: 20080901
  5. FOSAMAX [Suspect]
     Indication: OSTEOPOROSIS
     Route: 048
     Dates: start: 19980131

REACTIONS (46)
  - NEPHROPATHY TOXIC [None]
  - HAEMORRHOIDS [None]
  - HYPERLIPIDAEMIA [None]
  - OSTEONECROSIS [None]
  - FALL [None]
  - INTERVERTEBRAL DISC PROTRUSION [None]
  - CAROTID ARTERY DISEASE [None]
  - HYPERSENSITIVITY [None]
  - BLOOD CALCIUM INCREASED [None]
  - OSTEOARTHRITIS [None]
  - RENAL FAILURE CHRONIC [None]
  - INFECTION [None]
  - VERTIGO [None]
  - THYROID CYST [None]
  - RETROGRADE AMNESIA [None]
  - NEPHROPATHY [None]
  - HYPOAESTHESIA [None]
  - METABOLIC SYNDROME [None]
  - DEPRESSION [None]
  - BONE DISORDER [None]
  - ANXIETY [None]
  - GOITRE [None]
  - SLEEP DISORDER [None]
  - HIP FRACTURE [None]
  - LUMBAR SPINAL STENOSIS [None]
  - ABNORMAL WEIGHT GAIN [None]
  - COLONIC POLYP [None]
  - HYPERTENSION [None]
  - GASTROINTESTINAL DISORDER [None]
  - SPONDYLOLISTHESIS [None]
  - PAIN IN EXTREMITY [None]
  - MUSCULAR WEAKNESS [None]
  - SPINAL OSTEOARTHRITIS [None]
  - INTERVERTEBRAL DISC DEGENERATION [None]
  - ARTHRITIS [None]
  - FEMUR FRACTURE [None]
  - JAW DISORDER [None]
  - RESPIRATORY TRACT INFECTION [None]
  - HYPOKALAEMIA [None]
  - HAEMATOMA [None]
  - NASAL CONGESTION [None]
  - DIVERTICULITIS [None]
  - INTERVERTEBRAL DISC DISORDER [None]
  - ADVERSE DRUG REACTION [None]
  - DRUG HYPERSENSITIVITY [None]
  - BACK PAIN [None]
